FAERS Safety Report 9216471 (Version 1)
Quarter: 2013Q2

REPORT INFORMATION
  Report Type: Spontaneous
  Country: US (occurrence: US)
  Receive Date: 20130408
  Receipt Date: 20130408
  Transmission Date: 20140414
  Serious: Yes (Hospitalization)
  Sender: FDA-Public Use
  Company Number: US-ELI_LILLY_AND_COMPANY-US201106005500

PATIENT
  Age: 74 Year
  Sex: Female

DRUGS (9)
  1. FORTEO [Suspect]
     Indication: OSTEOPOROSIS
     Dosage: 20 UG, QD
     Route: 065
     Dates: start: 201105
  2. FORTEO [Suspect]
     Dosage: 20 UG, QD
     Route: 065
  3. FORTEO [Suspect]
     Dosage: 20 UG, QD
     Route: 065
  4. FORTEO [Suspect]
     Dosage: 20 UG, QD
     Route: 065
  5. FORTEO [Suspect]
     Dosage: 20 UG, QD
  6. FORTEO [Suspect]
     Dosage: 20 UG, QD
     Dates: end: 201211
  7. ALEVE [Concomitant]
     Indication: PAIN
  8. CAFFEINE [Concomitant]
  9. DEXLANSOPRAZOLE [Concomitant]

REACTIONS (22)
  - Bone formation increased [Unknown]
  - Meniere^s disease [Unknown]
  - Hypokinesia [Unknown]
  - Gait disturbance [Unknown]
  - Tremor [Not Recovered/Not Resolved]
  - Anxiety [Unknown]
  - Fear of falling [Unknown]
  - Injection site erythema [Recovered/Resolved]
  - Injection site inflammation [Recovered/Resolved]
  - Injection site rash [Unknown]
  - Palpitations [Not Recovered/Not Resolved]
  - Chest discomfort [Unknown]
  - Nervousness [Unknown]
  - Decreased activity [Unknown]
  - Feeling abnormal [Unknown]
  - Dizziness [Recovered/Resolved]
  - Injection site bruising [Unknown]
  - Dizziness [Unknown]
  - Blood calcium increased [Unknown]
  - Feeling hot [Unknown]
  - Asthenia [Unknown]
  - Mobility decreased [Unknown]
